FAERS Safety Report 20068555 (Version 11)
Quarter: 2023Q1

REPORT INFORMATION
  Report Type: Spontaneous
  Country: US (occurrence: US)
  Receive Date: 20211115
  Receipt Date: 20230103
  Transmission Date: 20230417
  Serious: Yes (Life-Threatening, Other)
  Sender: FDA-Public Use
  Company Number: US-PFIZER INC-202101493837

PATIENT
  Age: 89 Year
  Sex: Female

DRUGS (4)
  1. TOVIAZ [Suspect]
     Active Substance: FESOTERODINE FUMARATE
     Indication: Urinary incontinence
     Dosage: 8 MG FOR 1 MONTH
  2. TOVIAZ [Suspect]
     Active Substance: FESOTERODINE FUMARATE
     Dosage: 4 MG, DAILY
  3. PANTOPRAZOLE [Concomitant]
     Active Substance: PANTOPRAZOLE
     Indication: Reflux laryngitis
     Dosage: 40 MG; 1 TABLET EVERY DAY IN THE MORNING, BEFORE BREAKFAST
     Route: 048
  4. PANTOPRAZOLE [Concomitant]
     Active Substance: PANTOPRAZOLE
     Indication: Gastrooesophageal reflux disease

REACTIONS (11)
  - Near death experience [Unknown]
  - Pneumonia [Unknown]
  - Deafness [Unknown]
  - Blindness [Unknown]
  - Macular degeneration [Unknown]
  - Urinary tract infection [Unknown]
  - Bladder irritation [Unknown]
  - Dry eye [Unknown]
  - Aphonia [Unknown]
  - Oropharyngeal discomfort [Unknown]
  - Eye disorder [Unknown]
